FAERS Safety Report 9709702 (Version 1)
Quarter: 2013Q4

REPORT INFORMATION
  Report Type: Report from Study
  Country: US (occurrence: US)
  Receive Date: 20131126
  Receipt Date: 20131126
  Transmission Date: 20140711
  Serious: Yes (Hospitalization)
  Sender: FDA-Public Use
  Company Number: US-JNJFOC-20131111069

PATIENT
  Age: 45 Year
  Sex: Male

DRUGS (4)
  1. REMICADE [Suspect]
     Indication: RHEUMATOID ARTHRITIS
     Route: 042
     Dates: start: 2012
  2. TEKTURNA [Suspect]
     Indication: BLOOD PRESSURE
     Route: 048
     Dates: end: 201311
  3. EXFORGE [Suspect]
     Indication: BLOOD PRESSURE
     Route: 048
     Dates: end: 201311
  4. PRILOSEC [Concomitant]
     Indication: GASTRIC DISORDER
     Route: 048

REACTIONS (2)
  - Weight increased [Recovering/Resolving]
  - Blood pressure decreased [Not Recovered/Not Resolved]
